FAERS Safety Report 15863680 (Version 2)
Quarter: 2019Q1

REPORT INFORMATION
  Report Type: Report from Study
  Country: US (occurrence: US)
  Receive Date: 20190124
  Receipt Date: 20190307
  Transmission Date: 20190417
  Serious: Yes (Hospitalization)
  Sender: FDA-Public Use
  Company Number: US-EISAI MEDICAL RESEARCH-EC-2019-050196

PATIENT
  Sex: Male
  Weight: 103 kg

DRUGS (11)
  1. ASPIRIN. [Concomitant]
     Active Substance: ASPIRIN
  2. AMLODIPINE BESYLATE. [Concomitant]
     Active Substance: AMLODIPINE BESYLATE
  3. CRESTOR [Concomitant]
     Active Substance: ROSUVASTATIN CALCIUM
  4. FINASTERIDE. [Concomitant]
     Active Substance: FINASTERIDE
  5. METOPROLOL. [Concomitant]
     Active Substance: METOPROLOL
  6. LENVIMA [Suspect]
     Active Substance: LENVATINIB
     Indication: HEPATOCELLULAR CARCINOMA
     Route: 048
     Dates: start: 20181205
  7. FUROSEMIDE. [Concomitant]
     Active Substance: FUROSEMIDE
  8. ONDANSETRON [Concomitant]
     Active Substance: ONDANSETRON
  9. GABAPENTIN. [Concomitant]
     Active Substance: GABAPENTIN
  10. MULTIVITAMINS 50 PLUS [Concomitant]
  11. SPIRONOLACTONE. [Concomitant]
     Active Substance: SPIRONOLACTONE

REACTIONS (4)
  - Dehydration [Not Recovered/Not Resolved]
  - Nausea [Recovered/Resolved]
  - Blood pressure increased [Recovering/Resolving]
  - Vomiting [Recovered/Resolved]

NARRATIVE: CASE EVENT DATE: 2019
